FAERS Safety Report 5494989-X (Version None)
Quarter: 2007Q4

REPORT INFORMATION
  Report Type: 
  Country: None (occurrence: None)
  Receive Date: 20071022
  Receipt Date: 20070806
  Transmission Date: 20080405
  Serious: Yes (Hospitalization)
  Sender: FDA-Public Use
  Company Number: 2007-165905-NL

PATIENT
  Age: 33 Year
  Sex: Female

DRUGS (3)
  1. CHORIONIC GONADOTROPIN [Suspect]
     Indication: OVULATION INDUCTION
  2. MENOTROPINS [Suspect]
     Indication: OVULATION INDUCTION
     Dosage: 150 IU;
  3. CLOMIPHENE CITRATE [Concomitant]

REACTIONS (13)
  - ABDOMINAL DISTENSION [None]
  - ALANINE AMINOTRANSFERASE INCREASED [None]
  - ASCITES [None]
  - ASPARTATE AMINOTRANSFERASE INCREASED [None]
  - BLOOD BILIRUBIN INCREASED [None]
  - DYSPNOEA [None]
  - HAEMATOCRIT INCREASED [None]
  - HYPERBILIRUBINAEMIA [None]
  - JAUNDICE [None]
  - MALAISE [None]
  - NAUSEA [None]
  - OVARIAN HYPERSTIMULATION SYNDROME [None]
  - PRURITUS [None]
